FAERS Safety Report 24343354 (Version 1)
Quarter: 2024Q3

REPORT INFORMATION
  Report Type: Spontaneous
  Country: US (occurrence: US)
  Receive Date: 20240920
  Receipt Date: 20240920
  Transmission Date: 20241017
  Serious: No
  Sender: ELI LILLY AND CO
  Company Number: US-ELI_LILLY_AND_COMPANY-US202409010662

PATIENT
  Age: 60 Year
  Sex: Male

DRUGS (2)
  1. RETEVMO [Suspect]
     Active Substance: SELPERCATINIB
     Indication: Non-small cell lung cancer stage IIIA
     Dosage: 320 MG, UNKNOWN
     Route: 065
     Dates: start: 202406
  2. COUMADIN [Concomitant]
     Active Substance: WARFARIN SODIUM
     Indication: Product used for unknown indication

REACTIONS (3)
  - International normalised ratio increased [Unknown]
  - Fatigue [Unknown]
  - Blood pressure increased [Unknown]
